FAERS Safety Report 20146180 (Version 2)
Quarter: 2021Q4

REPORT INFORMATION
  Report Type: Spontaneous
  Country: DE (occurrence: None)
  Receive Date: 20211203
  Receipt Date: 20211209
  Transmission Date: 20220303
  Serious: Yes (Disabling)
  Sender: FDA-Public Use
  Company Number: DE-Eisai Europe Ltd-EC-2021-103349

PATIENT
  Age: 7 Year
  Sex: Male
  Weight: 29.8 kg

DRUGS (6)
  1. FYCOMPA [Suspect]
     Active Substance: PERAMPANEL
     Indication: Epilepsy
     Route: 048
     Dates: start: 20190522, end: 201905
  2. FYCOMPA [Suspect]
     Active Substance: PERAMPANEL
     Route: 048
     Dates: start: 201905, end: 201905
  3. FYCOMPA [Suspect]
     Active Substance: PERAMPANEL
     Dosage: INCREASED STEPWISE UP TO 2.3 MG
     Route: 048
     Dates: start: 201905
  4. VALPROATE [Concomitant]
     Active Substance: VALPROIC ACID
     Indication: Epilepsy
     Dosage: 1000 MG AND 150 MG
     Route: 048
     Dates: start: 2014
  5. LEVOCARNITIN [Concomitant]
     Indication: Drug therapy
     Route: 048
     Dates: start: 2017
  6. CHOLECALCIFEROL [Concomitant]
     Active Substance: CHOLECALCIFEROL
     Indication: Vitamin D deficiency
     Route: 048
     Dates: start: 2017

REACTIONS (4)
  - Gait inability [Recovered/Resolved]
  - Gait disturbance [Recovered/Resolved]
  - Fatigue [Unknown]
  - Drug ineffective [Unknown]

NARRATIVE: CASE EVENT DATE: 20190501
